FAERS Safety Report 6232523-7 (Version None)
Quarter: 2009Q2

REPORT INFORMATION
  Report Type: 
  Country: None (occurrence: None)
  Receive Date: 20090612
  Receipt Date: 20090528
  Transmission Date: 20091009
  Serious: Yes (Other)
  Sender: FDA-Public Use
  Company Number: 2009-197722-NL

PATIENT
  Age: 56 Year
  Sex: Female

DRUGS (3)
  1. REMERON [Suspect]
     Indication: DEPRESSION
     Dosage: 15 MG DAILY
     Dates: start: 20090101, end: 20090524
  2. REMERON [Suspect]
     Indication: DEPRESSION
     Dates: start: 20090526
  3. UNSPECIFIED A-FIB MEDICATION [Suspect]

REACTIONS (7)
  - DRUG INEFFECTIVE [None]
  - DYSPNOEA [None]
  - GAIT DISTURBANCE [None]
  - MUSCULOSKELETAL STIFFNESS [None]
  - OEDEMA PERIPHERAL [None]
  - PYREXIA [None]
  - WEIGHT INCREASED [None]
